FAERS Safety Report 8594459-6 (Version None)
Quarter: 2012Q3

REPORT INFORMATION
  Report Type: 
  Country: None (occurrence: None)
  Receive Date: 20120815
  Receipt Date: 20120807
  Transmission Date: 20120928
  Serious: Yes (Other)
  Sender: FDA-Public Use
  Company Number: GB-AMGEN-GBRSP2012050392

PATIENT
  Age: 66 Year
  Sex: Male

DRUGS (1)
  1. ENBREL [Suspect]
     Indication: PSORIATIC ARTHROPATHY
     Dosage: 50 MG, WEEKLY
     Route: 058
     Dates: start: 20090401

REACTIONS (5)
  - EYELID FUNCTION DISORDER [None]
  - EMOTIONAL DISTRESS [None]
  - MUSCULOSKELETAL STIFFNESS [None]
  - PARALYSIS [None]
  - FEELING DRUNK [None]
